FAERS Safety Report 8557428-8 (Version None)
Quarter: 2012Q3

REPORT INFORMATION
  Report Type: 
  Country: None (occurrence: None)
  Receive Date: 20120801
  Receipt Date: 20120724
  Transmission Date: 20120928
  Serious: Yes (Other)
  Sender: FDA-Public Use
  Company Number: US-ELI_LILLY_AND_COMPANY-US201207007792

PATIENT
  Sex: Female

DRUGS (8)
  1. VENTOLIN HFA [Concomitant]
  2. ASPIRIN [Concomitant]
  3. DILTIAZEM [Concomitant]
     Dosage: 240 MG, UNK
  4. EFFIENT [Suspect]
     Indication: STENT PLACEMENT
     Dosage: 10 MG, QD
     Dates: start: 20120216
  5. QVAR 40 [Concomitant]
  6. TOPROL-XL [Concomitant]
     Dosage: 20 MG, UNK
  7. SIMVASTATIN [Concomitant]
  8. HYDROCODONE [Concomitant]
     Dosage: 325 MG, UNK

REACTIONS (3)
  - CHEST PAIN [None]
  - PAIN IN EXTREMITY [None]
  - STENT PLACEMENT [None]
